FAERS Safety Report 24270239 (Version 1)
Quarter: 2024Q3

REPORT INFORMATION
  Report Type: Spontaneous
  Country: US (occurrence: US)
  Receive Date: 20240830
  Receipt Date: 20240830
  Transmission Date: 20241016
  Serious: Yes (Hospitalization, Other)
  Sender: FRESENIUS MEDICAL CARE
  Company Number: US-FMCRTG-FMC-2408-001027

PATIENT
  Age: 71 Year
  Sex: Female
  Weight: 87 kg

DRUGS (3)
  1. DELFLEX WITH DEXTROSE 1.5% LOW MAGNESIUM LOW CALCIUM [Suspect]
     Active Substance: CALCIUM CHLORIDE\DEXTROSE\MAGNESIUM CHLORIDE\SODIUM CHLORIDE\SODIUM LACTATE
     Indication: End stage renal disease
     Dosage: 7 DAYS-A-WEEK, DIALYSATE CA = 2.5 MEQ/L, MG = 0.5 MEQ/L, EXCHANGES = 4, FILL VOLUME = 2300 ML, DWELL
     Route: 033
  2. DELFLEX WITH DEXTROSE 2.5% LOW MAGNESIUM LOW CALCIUM [Suspect]
     Active Substance: CALCIUM CHLORIDE\DEXTROSE\MAGNESIUM CHLORIDE\SODIUM CHLORIDE\SODIUM LACTATE
     Indication: End stage renal disease
     Dosage: 7 DAYS-A-WEEK, DIALYSATE CA = 2.5 MEQ/L, MG = 0.5 MEQ/L, EXCHANGES = 4, FILL VOLUME = 2300 ML, DWELL
     Route: 033
  3. DELFLEX WITH DEXTROSE 4.25% LOW MAGNESIUM LOW CALCIUM [Suspect]
     Active Substance: CALCIUM CHLORIDE\DEXTROSE\MAGNESIUM CHLORIDE\SODIUM CHLORIDE\SODIUM LACTATE
     Indication: End stage renal disease
     Dosage: 7 DAYS-A-WEEK, DIALYSATE CA = 2.5 MEQ/L, MG = 0.5 MEQ/L, EXCHANGES = 4, FILL VOLUME = 2300 ML, DWELL
     Route: 033

REACTIONS (3)
  - Pleural effusion [Recovering/Resolving]
  - Acute respiratory distress syndrome [Recovering/Resolving]
  - Acute myocardial infarction [Recovering/Resolving]
